FAERS Safety Report 15762419 (Version 2)
Quarter: 2019Q1

REPORT INFORMATION
  Report Type: Report from Study
  Country: IE (occurrence: IE)
  Receive Date: 20181226
  Receipt Date: 20190107
  Transmission Date: 20190417
  Serious: Yes (Other)
  Sender: FDA-Public Use
  Company Number: IE-JNJFOC-20181217645

PATIENT
  Age: 54 Year
  Sex: Male

DRUGS (11)
  1. OMEPRAZOLE. [Concomitant]
     Active Substance: OMEPRAZOLE
     Route: 050
  2. DALMAPAM [Concomitant]
     Route: 050
  3. LARIG [Concomitant]
     Route: 050
  4. GEROQUEL [Concomitant]
     Route: 050
  5. TERBINAFINE. [Concomitant]
     Active Substance: TERBINAFINE
     Route: 050
  6. MIRTAZAPINE. [Concomitant]
     Active Substance: MIRTAZAPINE
     Route: 050
  7. STELARA [Suspect]
     Active Substance: USTEKINUMAB
     Indication: PSORIASIS
     Dosage: AS PER PRESCRIPTION
     Route: 058
     Dates: start: 20180920
  8. EPILIM [Concomitant]
     Active Substance: VALPROATE SODIUM
     Route: 050
  9. QUETIAPINE. [Concomitant]
     Active Substance: QUETIAPINE
     Route: 050
  10. QUETEX [Concomitant]
     Route: 050
  11. FOLIC ACID. [Concomitant]
     Active Substance: FOLIC ACID
     Route: 050

REACTIONS (1)
  - Lower respiratory tract infection [Unknown]

NARRATIVE: CASE EVENT DATE: 20181213
